FAERS Safety Report 10289702 (Version 1)
Quarter: 2014Q3

REPORT INFORMATION
  Report Type: Spontaneous
  Country: CH (occurrence: CH)
  Receive Date: 20140710
  Receipt Date: 20140710
  Transmission Date: 20150326
  Serious: Yes (Other)
  Sender: FDA-Public Use
  Company Number: CH-JNJFOC-20140700427

PATIENT
  Age: 29 Year
  Sex: Female

DRUGS (2)
  1. NIZORAL [Suspect]
     Active Substance: KETOCONAZOLE
     Indication: ACNE
     Route: 061
     Dates: start: 20140603, end: 20140610
  2. ACNELIN (TRETINOIN) [Suspect]
     Active Substance: TRETINOIN
     Indication: ACNE
     Route: 061
     Dates: start: 2010, end: 201403

REACTIONS (2)
  - Exposure during pregnancy [Unknown]
  - Drug prescribing error [Unknown]

NARRATIVE: CASE EVENT DATE: 20140103
